FAERS Safety Report 8008246-0 (Version None)
Quarter: 2011Q4

REPORT INFORMATION
  Report Type: 
  Country: None (occurrence: None)
  Receive Date: 20111123
  Receipt Date: 20110805
  Transmission Date: 20120403
  Serious: No
  Sender: FDA-Public Use
  Company Number: 336882

PATIENT
  Age: 56 Year
  Sex: Male
  Weight: 104.3 kg

DRUGS (4)
  1. ACTOS [Concomitant]
  2. METFORMIN HCL [Concomitant]
  3. GLIMEPIRIDE [Concomitant]
  4. VICTOZA [Suspect]
     Indication: TYPE 2 DIABETES MELLITUS
     Dosage: 1.2 MG, QD, SUBCUTANEOUS
     Route: 058
     Dates: end: 20110805

REACTIONS (5)
  - WEIGHT FLUCTUATION [None]
  - DECREASED APPETITE [None]
  - NAUSEA [None]
  - DIARRHOEA [None]
  - VOMITING [None]
